FAERS Safety Report 5087033-X (Version None)
Quarter: 2006Q3

REPORT INFORMATION
  Report Type: 
  Country: None (occurrence: None)
  Receive Date: 20060821
  Receipt Date: 20060809
  Transmission Date: 20061208
  Serious: Yes (Hospitalization)
  Sender: FDA-Public Use
  Company Number: 227289

PATIENT
  Age: 63 Year
  Sex: Female
  Weight: 69.8 kg

DRUGS (3)
  1. BEVACIZUMAB OR PLACEBO [Suspect]
     Indication: BREAST CANCER METASTATIC
     Dosage: 1050 MG, Q3W, INTRAVENOUS
     Route: 042
     Dates: start: 20060619
  2. NAVELBINE [Suspect]
     Indication: BREAST CANCER METASTATIC
     Dosage: 52.5
     Dates: start: 20060619
  3. CIPRO [Concomitant]

REACTIONS (8)
  - ABDOMINAL PAIN [None]
  - DIARRHOEA [None]
  - FEBRILE NEUTROPENIA [None]
  - HAEMATOCRIT DECREASED [None]
  - HAEMOGLOBIN DECREASED [None]
  - HEADACHE [None]
  - NAUSEA [None]
  - VOMITING [None]
